FAERS Safety Report 24603149 (Version 1)
Quarter: 2024Q4

REPORT INFORMATION
  Report Type: Spontaneous
  Country: US (occurrence: None)
  Receive Date: 20241108
  Receipt Date: 20241108
  Transmission Date: 20250114
  Serious: Yes (Hospitalization)
  Sender: Public
  Company Number: None

PATIENT
  Age: 19 Year
  Sex: Female
  Weight: 96.3 kg

DRUGS (3)
  1. ZEPBOUND [Suspect]
     Active Substance: TIRZEPATIDE
     Indication: Weight control
     Dosage: WEEKLY INTRAMUSCULAR
     Route: 030
     Dates: start: 20240315, end: 20241021
  2. FLUOXETINE [Concomitant]
  3. METHYLPHENIDATE [Concomitant]

REACTIONS (5)
  - Dyspepsia [None]
  - Vomiting [None]
  - Aphonia [None]
  - Oesophageal disorder [None]
  - Oesophageal haemorrhage [None]

NARRATIVE: CASE EVENT DATE: 20241024
